FAERS Safety Report 4394382-7 (Version None)
Quarter: 2004Q3

REPORT INFORMATION
  Report Type: 
  Country: None (occurrence: None)
  Receive Date: 20040707
  Receipt Date: 20040624
  Transmission Date: 20050211
  Serious: Yes (Other)
  Sender: FDA-Public Use
  Company Number: 2004034851

PATIENT
  Age: 62 Year
  Sex: Male
  Weight: 89.3586 kg

DRUGS (6)
  1. LIPITOR [Suspect]
     Indication: BLOOD CHOLESTEROL INCREASED
     Dosage: 10 MG (10 MG, 1 IN 1 D), ORAL
     Route: 048
     Dates: start: 20030130, end: 20040424
  2. CELECOXIB (CELECOXIB) [Suspect]
     Indication: ARTHRITIS
     Dosage: 200 MG (200 MG, 1 IN 1D), ORAL
     Route: 048
     Dates: end: 20040424
  3. FENOFIBRATE [Suspect]
     Indication: HYPERLIPIDAEMIA
     Dosage: 54 MG (1 IN 1 D)
     Dates: start: 20030130, end: 20040424
  4. ACETYLSALICYLIC ACID SRT [Concomitant]
  5. DILTIAZEM [Concomitant]
  6. CANDESARTAN CILEXETIL (CANDESARTAN CILEXETIL) [Concomitant]

REACTIONS (22)
  - ABDOMINAL PAIN UPPER [None]
  - ALANINE AMINOTRANSFERASE INCREASED [None]
  - ASPARTATE AMINOTRANSFERASE INCREASED [None]
  - BLOOD CHLORIDE INCREASED [None]
  - BLOOD CHOLESTEROL INCREASED [None]
  - BLOOD CREATINE PHOSPHOKINASE INCREASED [None]
  - BLOOD TRIGLYCERIDES INCREASED [None]
  - BLOOD UREA INCREASED [None]
  - BURNING SENSATION [None]
  - CARDIAC STRESS TEST ABNORMAL [None]
  - CHEST PAIN [None]
  - DIFFICULTY IN WALKING [None]
  - HEPATIC STEATOSIS [None]
  - HIGH DENSITY LIPOPROTEIN DECREASED [None]
  - INSOMNIA [None]
  - MENISCUS LESION [None]
  - MUSCLE CRAMP [None]
  - MUSCLE STRAIN [None]
  - MUSCULAR WEAKNESS [None]
  - MYALGIA [None]
  - PAIN [None]
  - SKIN DISORDER [None]
